FAERS Safety Report 5058712-5 (Version None)
Quarter: 2006Q3

REPORT INFORMATION
  Report Type: 
  Country: None (occurrence: None)
  Receive Date: 20060721
  Receipt Date: 20051104
  Transmission Date: 20061208
  Serious: No
  Sender: FDA-Public Use
  Company Number: US-AMGEN-KDL156873

PATIENT
  Sex: Male
  Weight: 63.6 kg

DRUGS (2)
  1. PROCRIT [Suspect]
     Indication: ANAEMIA
     Route: 058
     Dates: start: 20050804
  2. MEDICINALPRODUCT NOT SPECIFIED BY SENDER [Concomitant]

REACTIONS (1)
  - URINARY TRACT INFECTION [None]
